FAERS Safety Report 10619124 (Version 1)
Quarter: 2014Q4

REPORT INFORMATION
  Report Type: Report from Study
  Country: AU (occurrence: AU)
  Receive Date: 20141202
  Receipt Date: 20141202
  Transmission Date: 20150529
  Serious: Yes (Hospitalization, Disabling)
  Sender: FDA-Public Use
  Company Number: AU-BAYER-2014-171101

PATIENT
  Age: 48 Year
  Sex: Female

DRUGS (2)
  1. NEXAVAR [Suspect]
     Active Substance: SORAFENIB
     Dosage: UNKNOWN DOSE
     Route: 048
  2. NEXAVAR [Suspect]
     Active Substance: SORAFENIB
     Dosage: INCREASED TO 800 MG
     Route: 048
     Dates: start: 20141028

REACTIONS (3)
  - Mucosal inflammation [Recovered/Resolved]
  - Enterocolitis [Recovering/Resolving]
  - Lethargy [None]

NARRATIVE: CASE EVENT DATE: 20141104
